FAERS Safety Report 8385879-3 (Version None)
Quarter: 2012Q2

REPORT INFORMATION
  Report Type: 
  Country: None (occurrence: None)
  Receive Date: 20120525
  Receipt Date: 20120521
  Transmission Date: 20120825
  Serious: Yes (Hospitalization)
  Sender: FDA-Public Use
  Company Number: BR-US-EMD SERONO, INC.-7134533

PATIENT
  Sex: Female

DRUGS (3)
  1. DAFORIN [Concomitant]
     Indication: PRODUCT USED FOR UNKNOWN INDICATION
  2. REBIF [Suspect]
     Indication: RELAPSING-REMITTING MULTIPLE SCLEROSIS
     Dates: start: 20120101
  3. FLANAX [Concomitant]
     Indication: HEADACHE

REACTIONS (9)
  - HYPOAESTHESIA [None]
  - IRRITABILITY [None]
  - DRUG DOSE OMISSION [None]
  - SENSORY LOSS [None]
  - ANXIETY [None]
  - HEADACHE [None]
  - INJECTION SITE PAIN [None]
  - INJECTION SITE HAEMATOMA [None]
  - INJECTION SITE NODULE [None]
